FAERS Safety Report 4404297-3 (Version None)
Quarter: 2004Q3

REPORT INFORMATION
  Report Type: 
  Country: None (occurrence: None)
  Receive Date: 20040719
  Receipt Date: 20031124
  Transmission Date: 20050211
  Serious: Yes (Hospitalization)
  Sender: FDA-Public Use
  Company Number: 2003187485SE

PATIENT
  Age: 69 Year
  Sex: Male

DRUGS (3)
  1. PREDNISOLONE [Suspect]
     Dosage: 5 MG
  2. METHOTREXATE PHARMACIA (METH [Suspect]
  3. ANAKINRA(ANAKINRA) [Suspect]
     Indication: RHEUMATOID ARTHRITIS
     Dosage: 100 MG, UNK
     Dates: start: 20020708, end: 20021123

REACTIONS (2)
  - POST PROCEDURAL COMPLICATION [None]
  - UROSEPSIS [None]
